FAERS Safety Report 16787874 (Version 1)
Quarter: 2019Q3

REPORT INFORMATION
  Report Type: Other
  Country: CN (occurrence: CN)
  Receive Date: 20190909
  Receipt Date: 20190909
  Transmission Date: 20191005
  Serious: Yes (Other)
  Sender: FDA-Public Use
  Company Number: CN-GE HEALTHCARE LIFE SCIENCES-2019CSU004519

PATIENT

DRUGS (4)
  1. VISIPAQUE [Suspect]
     Active Substance: IODIXANOL
     Indication: ISCHAEMIA
  2. VISIPAQUE [Suspect]
     Active Substance: IODIXANOL
     Indication: TYPE 2 DIABETES MELLITUS
  3. VISIPAQUE [Suspect]
     Active Substance: IODIXANOL
     Indication: ANGIOGRAM CEREBRAL
     Dosage: 100 ML, SINGLE
     Route: 042
     Dates: start: 20190819, end: 20190819
  4. VISIPAQUE [Suspect]
     Active Substance: IODIXANOL
     Indication: SYNCOPE

REACTIONS (1)
  - Henoch-Schonlein purpura [Recovering/Resolving]

NARRATIVE: CASE EVENT DATE: 20190823
